FAERS Safety Report 7989109-3 (Version None)
Quarter: 2011Q4

REPORT INFORMATION
  Report Type: 
  Country: None (occurrence: None)
  Receive Date: 20111007
  Receipt Date: 20110816
  Transmission Date: 20120403
  Serious: No
  Sender: FDA-Public Use
  Company Number: 2011HGS-002489

PATIENT
  Age: 55 Year
  Sex: Female
  Weight: 76.6579 kg

DRUGS (16)
  1. POTASSIUM [Concomitant]
  2. FENTANYL [Concomitant]
  3. PROMETHAZINE [Concomitant]
  4. ONDANSETRON [Concomitant]
  5. MELOXICAM [Concomitant]
  6. TRAZODONE HCL [Concomitant]
  7. ACTONEL [Concomitant]
  8. TEMAZEPAM [Concomitant]
  9. ANTIDEPRESSANT (ANTIDEPRESSANTS) (DESVENLAFAXINE) [Concomitant]
  10. VITAMIN D [Concomitant]
  11. FUROSEMIDE [Concomitant]
  12. PREGABALIN [Concomitant]
  13. BENLYSTA [Suspect]
     Dosage: INTRAVENOUS DRIP
     Route: 041
     Dates: start: 20110607, end: 20110607
  14. PRILOSEC [Concomitant]
  15. LORAZEPAM [Concomitant]
  16. MECLIZINE [Concomitant]

REACTIONS (5)
  - FATIGUE [None]
  - WEIGHT DECREASED [None]
  - DECREASED APPETITE [None]
  - NAUSEA [None]
  - DIARRHOEA [None]
